FAERS Safety Report 4363314-X (Version None)
Quarter: 2004Q2

REPORT INFORMATION
  Report Type: 
  Country: None (occurrence: None)
  Receive Date: 20040517
  Receipt Date: 20040203
  Transmission Date: 20050107
  Serious: No
  Sender: FDA-Public Use
  Company Number: S04-USA-00505-01

PATIENT
  Age: 86 Year
  Sex: Female

DRUGS (7)
  1. NAMENDA [Suspect]
     Indication: DEMENTIA ALZHEIMER'S TYPE
     Dosage: 15MG QD PO
     Route: 048
     Dates: start: 20040120, end: 20040127
  2. NAMENDA [Suspect]
     Indication: DEMENTIA ALZHEIMER'S TYPE
     Dosage: 10 MG BID PO
     Route: 048
     Dates: start: 20040128
  3. NAMENDA [Suspect]
     Indication: DEMENTIA ALZHEIMER'S TYPE
     Dosage: 5 MG QD PO
     Route: 048
     Dates: start: 20040105, end: 20040112
  4. NAMENDA [Suspect]
     Indication: DEMENTIA ALZHEIMER'S TYPE
     Dosage: 10 MG QD PO
     Route: 048
     Dates: start: 20040113, end: 20040119
  5. RISPERDAL [Concomitant]
  6. DILANTIN [Concomitant]
  7. MULTIVITAMIN [Concomitant]

REACTIONS (2)
  - HYPOKINESIA [None]
  - MUSCULOSKELETAL STIFFNESS [None]
